FAERS Safety Report 25725121 (Version 1)
Quarter: 2025Q3

REPORT INFORMATION
  Report Type: Spontaneous
  Country: GB (occurrence: GB)
  Receive Date: 20250826
  Receipt Date: 20250826
  Transmission Date: 20251020
  Serious: Yes (Other)
  Sender: ALKEM
  Company Number: None

PATIENT
  Age: 42 Year
  Sex: Female
  Weight: 65 kg

DRUGS (8)
  1. PREGABALIN [Suspect]
     Active Substance: PREGABALIN
     Indication: Product used for unknown indication
     Route: 065
  2. METOCLOPRAMIDE [Concomitant]
     Active Substance: METOCLOPRAMIDE
     Indication: Product used for unknown indication
     Route: 065
     Dates: start: 20250403
  3. METOCLOPRAMIDE [Concomitant]
     Active Substance: METOCLOPRAMIDE
     Route: 065
  4. NEFOPAM [Concomitant]
     Active Substance: NEFOPAM
     Indication: Product used for unknown indication
     Route: 065
  5. NEFOPAM [Concomitant]
     Active Substance: NEFOPAM
     Route: 065
  6. NORTRIPTYLINE [Concomitant]
     Active Substance: NORTRIPTYLINE
     Indication: Product used for unknown indication
     Route: 065
  7. PENICILLIN V [Concomitant]
     Active Substance: PENICILLIN V
     Indication: Product used for unknown indication
     Route: 065
  8. TRAMADOL [Concomitant]
     Active Substance: TRAMADOL
     Indication: Product used for unknown indication
     Route: 065

REACTIONS (4)
  - Paranoia [Unknown]
  - Agitation [Unknown]
  - Insomnia [Unknown]
  - Anxiety [Unknown]
